FAERS Safety Report 5608819-6 (Version None)
Quarter: 2008Q1

REPORT INFORMATION
  Report Type: 
  Country: None (occurrence: None)
  Receive Date: 20080131
  Receipt Date: 20080125
  Transmission Date: 20080703
  Serious: Yes (Other)
  Sender: FDA-Public Use
  Company Number: US-BAYER-US-2007-036628

PATIENT
  Age: 53 Year
  Sex: Male

DRUGS (19)
  1. MAGNEVIST [Suspect]
     Indication: ANGIOGRAM
     Dosage: TOTAL DAILY DOSE: 40 ML  UNIT DOSE: 40 ML
     Dates: start: 20060713, end: 20060713
  2. MAGNEVIST [Suspect]
     Dosage: TOTAL DAILY DOSE: 40 ML
     Dates: start: 20060306, end: 20060306
  3. MAGNEVIST [Suspect]
     Dosage: TOTAL DAILY DOSE: 40 ML
     Dates: start: 20060410, end: 20060410
  4. MAGNEVIST [Suspect]
     Dates: start: 20060828, end: 20060828
  5. MAGNEVIST [Suspect]
     Dates: start: 20070518
  6. EPOGEN [Concomitant]
  7. ASPIRIN [Concomitant]
  8. ADEPRIL [Concomitant]
  9. CALCITRIOL [Concomitant]
  10. CALCIUM ACETATE [Concomitant]
     Dosage: AS USED: 667 MG  UNIT DOSE: 667 MG
  11. EPOETIN ALFA [Concomitant]
  12. LORATADINE [Concomitant]
  13. PSEUDOEPHEDRINE HCL [Concomitant]
  14. METOPROLOL TARTRATE [Concomitant]
  15. OXYCODONE AND ACETAMINOPHEN [Concomitant]
  16. SIMVASTATIN [Concomitant]
  17. TERAZOSIN HCL [Concomitant]
  18. WARFARIN SODIUM [Concomitant]
  19. IMMUNOSUPPRESSANT MEDICATION [Concomitant]

REACTIONS (6)
  - HAND DEFORMITY [None]
  - NEPHROGENIC SYSTEMIC FIBROSIS [None]
  - RAYNAUD'S PHENOMENON [None]
  - SKIN DISCOLOURATION [None]
  - SKIN TIGHTNESS [None]
  - UPPER LIMB DEFORMITY [None]
